FAERS Safety Report 6577303-8 (Version None)
Quarter: 2010Q1

REPORT INFORMATION
  Report Type: 
  Country: None (occurrence: None)
  Receive Date: 20100210
  Receipt Date: 20100202
  Transmission Date: 20100710
  Serious: Yes (Hospitalization, Other)
  Sender: FDA-Public Use
  Company Number: PHHO2010JP00822

PATIENT
  Sex: Male
  Weight: 13 kg

DRUGS (4)
  1. ACZ885 ACZ+ [Suspect]
     Indication: CRYOPYRIN ASSOCIATED PERIODIC SYNDROME
     Dosage: 26 MG
     Route: 058
     Dates: start: 20100106
  2. NAIXAN [Concomitant]
  3. RHEUMATREX [Concomitant]
  4. FOLIAMIN [Concomitant]

REACTIONS (14)
  - ANAEMIA [None]
  - DECREASED APPETITE [None]
  - DISSEMINATED INTRAVASCULAR COAGULATION [None]
  - HAEMOPHILUS INFECTION [None]
  - HYPOALBUMINAEMIA [None]
  - HYPOXIA [None]
  - LUNG DISORDER [None]
  - PLEURAL EFFUSION [None]
  - PNEUMONIA STREPTOCOCCAL [None]
  - PULMONARY OEDEMA [None]
  - PYREXIA [None]
  - STAPHYLOCOCCAL INFECTION [None]
  - UPPER AIRWAY OBSTRUCTION [None]
  - VOMITING [None]
